FAERS Safety Report 16120253 (Version 1)
Quarter: 2019Q1

REPORT INFORMATION
  Report Type: Spontaneous
  Country: FR (occurrence: FR)
  Receive Date: 20190326
  Receipt Date: 20190326
  Transmission Date: 20190418
  Serious: Yes (Other)
  Sender: FDA-Public Use
  Company Number: FR-PFIZER INC-2019123493

PATIENT
  Age: 56 Year
  Sex: Male

DRUGS (5)
  1. ATORVASTATIN CALCIUM. [Suspect]
     Active Substance: ATORVASTATIN CALCIUM
     Indication: ATHEROSCLEROSIS PROPHYLAXIS
     Dosage: UNK
     Route: 048
     Dates: start: 2014
  2. MONASCUS PURPUREUS [Interacting]
     Active Substance: RED YEAST
     Indication: HYPERCHOLESTEROLAEMIA
     Dosage: 4 DF, 1X/DAY
     Route: 048
     Dates: start: 201901, end: 20190212
  3. CURCUMA ZANTHORRHIZA EXTRACT [Interacting]
     Active Substance: CURCUMA XANTHORRHIZA ROOT EXTRACT
     Dosage: 6 DF, 1X/DAY
     Route: 048
     Dates: start: 201812
  4. KARDEGIC [Concomitant]
     Active Substance: ASPIRIN DL-LYSINE
     Dosage: 75 MG, 1X/DAY
     Route: 048
     Dates: start: 2014
  5. TRIATEC [RAMIPRIL] [Concomitant]
     Active Substance: RAMIPRIL
     Dosage: UNK
     Route: 048
     Dates: start: 2014

REACTIONS (2)
  - Hepatitis [Unknown]
  - Drug interaction [Unknown]

NARRATIVE: CASE EVENT DATE: 20190212
